FAERS Safety Report 6558825-2 (Version None)
Quarter: 2010Q1

REPORT INFORMATION
  Report Type: 
  Country: None (occurrence: None)
  Receive Date: 20100129
  Receipt Date: 20100118
  Transmission Date: 20100710
  Serious: Yes (Hospitalization, Other)
  Sender: FDA-Public Use
  Company Number: PHHY2010FR02449

PATIENT

DRUGS (6)
  1. VALSARTAN AND HYDROCHLOROTHIAZIDE [Suspect]
     Dosage: 160/25 MG , QD
     Route: 048
  2. NITROGLYCERIN [Suspect]
     Dosage: 10 MG PER 24 HOURS
     Route: 062
  3. CADUET [Suspect]
     Dosage: 5/10 MG, QD
     Route: 065
  4. PARACETAMOL [Concomitant]
     Route: 065
  5. TEMESTA [Concomitant]
     Route: 065
  6. PLAVIX [Concomitant]
     Route: 065

REACTIONS (8)
  - AMNESIA [None]
  - FACIAL BONES FRACTURE [None]
  - HYPERTENSIVE CARDIOMYOPATHY [None]
  - MALAISE [None]
  - SUBDURAL HAEMATOMA [None]
  - SUPRAVENTRICULAR EXTRASYSTOLES [None]
  - SYNCOPE [None]
  - VENTRICULAR EXTRASYSTOLES [None]
